FAERS Safety Report 5849037-6 (Version None)
Quarter: 2008Q3

REPORT INFORMATION
  Report Type: 
  Country: None (occurrence: None)
  Receive Date: 20080815
  Receipt Date: 20071010
  Transmission Date: 20090109
  Serious: Yes (Other)
  Sender: FDA-Public Use
  Company Number: WAES 0710GBR00070

PATIENT
  Age: 61 Year
  Sex: Female

DRUGS (9)
  1. INDOCIN [Suspect]
     Indication: MIGRAINE
     Dosage: 50 MG TID PO
     Route: 048
     Dates: end: 20070912
  2. ALBUTEROL [Concomitant]
  3. AMITRIPTYLINE HYDROCHLORIDE [Concomitant]
  4. BECLOMETHASONE DIPROPIONATE [Concomitant]
  5. LANSOPRAZOLE [Concomitant]
  6. LITHIUM CARBONATE [Concomitant]
  7. ONDANSETRON [Concomitant]
  8. TRAMADOL HCI [Concomitant]
  9. ZOLMITRIPTAN [Concomitant]

REACTIONS (2)
  - AUTOIMMUNE HEPATITIS [None]
  - CHOLECYSTECTOMY [None]
